FAERS Safety Report 5990718-1 (Version None)
Quarter: 2008Q4

REPORT INFORMATION
  Report Type: 
  Country: None (occurrence: None)
  Receive Date: 20081211
  Receipt Date: 20081208
  Transmission Date: 20090506
  Serious: Yes (Life-Threatening, Other)
  Sender: FDA-Public Use
  Company Number: PHHY2008BR31227

PATIENT
  Age: 62 Year
  Sex: Female

DRUGS (5)
  1. EXELON [Suspect]
     Dosage: 1.5 MG , 1 TABLET A DAY
     Route: 048
     Dates: start: 20080601
  2. EXELON [Suspect]
     Dosage: 1.5MG 2 TABLET A DAY
     Route: 048
  3. EXELON [Suspect]
     Dosage: 3 MG
     Route: 048
  4. DIOVAN HCT [Concomitant]
  5. RISPERIDONE [Concomitant]
     Dosage: UNK
     Dates: start: 20080601

REACTIONS (6)
  - HYPERTENSION [None]
  - NAUSEA [None]
  - RESPIRATORY ARREST [None]
  - SPEECH DISORDER [None]
  - TREMOR [None]
  - VOMITING [None]
